FAERS Safety Report 14636343 (Version 1)
Quarter: 2018Q1

REPORT INFORMATION
  Report Type: Spontaneous
  Country: IT (occurrence: IT)
  Receive Date: 20180314
  Receipt Date: 20180314
  Transmission Date: 20180509
  Serious: Yes (Hospitalization)
  Sender: FDA-Public Use
  Company Number: IT-TEVA-2018-IT-866864

PATIENT
  Age: 52 Year
  Sex: Female

DRUGS (3)
  1. DEPAKIN [Suspect]
     Active Substance: VALPROATE SODIUM
     Indication: TRISOMY 21
     Route: 048
     Dates: start: 20170101, end: 20170902
  2. OLANZAPINE. [Suspect]
     Active Substance: OLANZAPINE
     Indication: TRISOMY 21
     Route: 048
     Dates: start: 20170101, end: 20170902
  3. DELORAZEPAM [Suspect]
     Active Substance: DELORAZEPAM
     Indication: TRISOMY 21
     Route: 048
     Dates: start: 20170101, end: 20170902

REACTIONS (2)
  - Asthenia [Unknown]
  - Sopor [Unknown]

NARRATIVE: CASE EVENT DATE: 20170902
